FAERS Safety Report 13192588 (Version 2)
Quarter: 2017Q1

REPORT INFORMATION
  Report Type: Spontaneous
  Country: US (occurrence: US)
  Receive Date: 20170207
  Receipt Date: 20170303
  Transmission Date: 20170428
  Serious: Yes (Other)
  Sender: FDA-Public Use
  Company Number: US-BRACCO-014384

PATIENT
  Age: 70 Year
  Sex: Female
  Weight: 66 kg

DRUGS (2)
  1. ISOVUE 370 [Suspect]
     Active Substance: IOPAMIDOL
     Indication: ANGIOGRAM
     Route: 042
     Dates: start: 20170125, end: 20170125
  2. ELIQUIS [Concomitant]
     Active Substance: APIXABAN
     Indication: PULMONARY EMBOLISM

REACTIONS (4)
  - Nausea [Recovered/Resolved]
  - Retching [Recovered/Resolved]
  - Hypoxia [Recovered/Resolved]
  - Hyporesponsive to stimuli [Recovered/Resolved]

NARRATIVE: CASE EVENT DATE: 20170125
